FAERS Safety Report 13090073 (Version 1)
Quarter: 2017Q1

REPORT INFORMATION
  Report Type: Spontaneous
  Country: CN (occurrence: CN)
  Receive Date: 20170105
  Receipt Date: 20170105
  Transmission Date: 20170428
  Serious: Yes (Hospitalization, Other)
  Sender: FDA-Public Use
  Company Number: CN-GLAXOSMITHKLINE-CN2016GSK192308

PATIENT
  Age: 7 Year
  Sex: Male
  Weight: 23 kg

DRUGS (4)
  1. LAMOTRIGINE. [Suspect]
     Active Substance: LAMOTRIGINE
     Dosage: 25 MG, 1D
  2. LAMOTRIGINE. [Suspect]
     Active Substance: LAMOTRIGINE
     Dosage: 37.5 MG, 1D
  3. VALPROATE [Concomitant]
     Active Substance: VALPROIC ACID
     Indication: EPILEPSY
     Dosage: UNK, BID
  4. LAMOTRIGINE. [Suspect]
     Active Substance: LAMOTRIGINE
     Indication: EPILEPSY
     Dosage: 12.5 MG, 1D
     Route: 048

REACTIONS (11)
  - Toxic epidermal necrolysis [Recovered/Resolved]
  - Ocular hyperaemia [Unknown]
  - Pruritus [Unknown]
  - Conjunctival hyperaemia [Unknown]
  - Dermatitis [Unknown]
  - Hyperpyrexia [Unknown]
  - Breath sounds abnormal [Unknown]
  - Rash [Unknown]
  - Pyrexia [Unknown]
  - Blister [Unknown]
  - Generalised erythema [Unknown]
